FAERS Safety Report 14338698 (Version 4)
Quarter: 2018Q2

REPORT INFORMATION
  Report Type: Spontaneous
  Country: FI (occurrence: FI)
  Receive Date: 20171229
  Receipt Date: 20180508
  Transmission Date: 20180711
  Serious: Yes (Life-Threatening, Hospitalization, Other)
  Sender: FDA-Public Use
  Company Number: FI-PFIZER INC-2017551876

PATIENT
  Age: 56 Year
  Sex: Female
  Weight: 176 kg

DRUGS (8)
  1. GRAFALON [Suspect]
     Active Substance: LAPINE T-LYMPHOCYTE IMMUNE GLOBULIN
     Indication: STEM CELL TRANSPLANT
     Dosage: 800 MG, UNK
     Route: 042
     Dates: start: 20171208, end: 20171208
  2. URSODEOXYCHOLIC ACID [Suspect]
     Active Substance: URSODIOL
     Indication: PROPHYLAXIS
     Dosage: 900 MG, DAILY
     Route: 048
     Dates: start: 20171205
  3. ONDANSETRON [Suspect]
     Active Substance: ONDANSETRON
     Indication: NAUSEA
     Dosage: 16 MG, 1X/DAY
     Route: 048
     Dates: start: 20171206, end: 20171212
  4. METHYLPREDNISOLONE SODIUM SUCCINATE. [Suspect]
     Active Substance: METHYLPREDNISOLONE SODIUM SUCCINATE
     Dosage: 40 G, UNK
     Route: 042
     Dates: start: 20171208
  5. CALCITRAN D3 [Suspect]
     Active Substance: CALCIUM CARBONATE\CHOLECALCIFEROL
     Dosage: 2 DF, 1X/DAY
     Route: 048
     Dates: start: 20171206
  6. ALLOPURINOL. [Suspect]
     Active Substance: ALLOPURINOL
     Indication: PROPHYLAXIS
     Dosage: 300 MG, DAILY
     Route: 048
     Dates: start: 20171205, end: 20171210
  7. FLUDARABINE [Suspect]
     Active Substance: FLUDARABINE PHOSPHATE
     Dosage: 60 MG, UNK
     Route: 042
     Dates: start: 20171208, end: 20171209
  8. TREOSULFAN [Suspect]
     Active Substance: TREOSULFAN
     Dosage: 28 G, UNK
     Route: 042
     Dates: start: 20171208, end: 20171209

REACTIONS (4)
  - Acute graft versus host disease [Not Recovered/Not Resolved]
  - Disseminated intravascular coagulation [Not Recovered/Not Resolved]
  - Renal impairment [Not Recovered/Not Resolved]
  - Pyrexia [Not Recovered/Not Resolved]

NARRATIVE: CASE EVENT DATE: 20171209
